FAERS Safety Report 4578600-8 (Version None)
Quarter: 2005Q1

REPORT INFORMATION
  Report Type: 
  Country: None (occurrence: None)
  Receive Date: 20050209
  Receipt Date: 20050131
  Transmission Date: 20050727
  Serious: Yes (Other)
  Sender: FDA-Public Use
  Company Number: GBWYE393102FEB05

PATIENT
  Age: 1 Year
  Sex: Female

DRUGS (3)
  1. CHILDREN'S ADVIL [Suspect]
     Dosage: 5MG/KG (FREQUENCY UNKNOWN) ORAL
     Route: 048
  2. ANADIN PARACETAMOL (ACETAMINOPHEN, TABLET, 0) [Suspect]
     Dosage: 15MG/KG (FREQUENCY UNKNOWN) ORAL
     Route: 048
  3. CEFUROXIME [Concomitant]

REACTIONS (6)
  - HYPOTHERMIA [None]
  - LOBAR PNEUMONIA [None]
  - LUNG CREPITATION [None]
  - SEPSIS [None]
  - TACHYCARDIA [None]
  - TACHYPNOEA [None]
